FAERS Safety Report 7005143-4 (Version None)
Quarter: 2010Q3

REPORT INFORMATION
  Report Type: 
  Country: None (occurrence: None)
  Receive Date: 20100921
  Receipt Date: 20100917
  Transmission Date: 20110219
  Serious: Yes (Life-Threatening, Hospitalization, Other)
  Sender: FDA-Public Use
  Company Number: PHFR2010IE02302

PATIENT
  Sex: Female

DRUGS (6)
  1. CLOZARIL [Suspect]
     Indication: SCHIZOPHRENIA
     Dosage: UNK
     Route: 048
     Dates: start: 20070828
  2. ABILIFY [Concomitant]
     Indication: SCHIZOPHRENIA
     Dosage: UNK
     Route: 048
     Dates: start: 20080101
  3. ACETYLSALICYLIC ACID [Concomitant]
     Dosage: 75MG DAILY
     Route: 048
     Dates: start: 20080101
  4. ARICEPT [Concomitant]
     Indication: COGNITIVE DISORDER
     Dosage: UNK
     Route: 048
  5. CRESTOR [Concomitant]
     Dosage: 10MG DAILY
     Route: 048
  6. LUSTRAL [Concomitant]
     Indication: DEPRESSION
     Dosage: 100MG DAILY
     Route: 048
     Dates: start: 20100101

REACTIONS (3)
  - AORTIC ANEURYSM [None]
  - PULMONARY EMBOLISM [None]
  - UTERINE LEIOMYOMA [None]
